FAERS Safety Report 5819388-X (Version None)
Quarter: 2008Q3

REPORT INFORMATION
  Report Type: 
  Country: None (occurrence: None)
  Receive Date: 20080718
  Receipt Date: 20080703
  Transmission Date: 20090109
  Serious: Yes (Other)
  Sender: FDA-Public Use
  Company Number: 8028466

PATIENT
  Age: 26 Year
  Sex: Female

DRUGS (7)
  1. KEPPRA [Suspect]
     Dosage: 1250 MG /D
     Dates: start: 20060101, end: 20080422
  2. KEPPRA [Suspect]
     Dosage: 2000 MG /D
     Dates: start: 20080426, end: 20080610
  3. FOLIC ACID [Concomitant]
  4. JODETTEN [Concomitant]
  5. IRON [Concomitant]
  6. TEGRETOL [Concomitant]
  7. TEGRETOL [Concomitant]

REACTIONS (4)
  - CONDITION AGGRAVATED [None]
  - DRUG EXPOSURE DURING PREGNANCY [None]
  - EPILEPSY [None]
  - UNINTENDED PREGNANCY [None]
